FAERS Safety Report 5306359-5 (Version None)
Quarter: 2007Q2

REPORT INFORMATION
  Report Type: 
  Country: None (occurrence: None)
  Receive Date: 20070424
  Receipt Date: 20070416
  Transmission Date: 20071010
  Serious: Yes (Hospitalization)
  Sender: FDA-Public Use
  Company Number: NO-BAYER-200712268GDS

PATIENT
  Age: 76 Year
  Sex: Female

DRUGS (8)
  1. NOVID [Suspect]
     Dates: start: 20070312, end: 20070312
  2. KLEXANE [Suspect]
     Indication: PNEUMONIA
     Dates: start: 20070312, end: 20070315
  3. ACETYLSALISYLSYRE [Suspect]
     Dates: start: 20070312, end: 20070315
  4. MIDAZOLAM HCL [Concomitant]
     Dates: start: 20070312, end: 20070314
  5. NOVORAPID [Concomitant]
  6. PANTOPRAZOLE SODIUM [Concomitant]
  7. FENTANYL [Concomitant]
     Dates: start: 20070312, end: 20070314
  8. PENICILLIN [Concomitant]

REACTIONS (4)
  - HAEMOGLOBIN DECREASED [None]
  - HYPOTENSION [None]
  - HYPOVOLAEMIA [None]
  - RETROPERITONEAL HAEMATOMA [None]
